FAERS Safety Report 4983236-0 (Version None)
Quarter: 2006Q2

REPORT INFORMATION
  Report Type: 
  Country: None (occurrence: None)
  Receive Date: 20060419
  Receipt Date: 20060403
  Transmission Date: 20061013
  Serious: Yes (Death)
  Sender: FDA-Public Use
  Company Number: JP_051007938

PATIENT
  Age: 63 Year
  Sex: Male
  Weight: 54 kg

DRUGS (2)
  1. GEMZAR [Suspect]
     Indication: NON-SMALL CELL LUNG CANCER
     Dosage: 1600 MG, OTHER, INTRAVENOUS
     Route: 042
     Dates: start: 20050808, end: 20051011
  2. NAVELBINE [Concomitant]

REACTIONS (4)
  - CONDITION AGGRAVATED [None]
  - LUNG DISORDER [None]
  - PNEUMONITIS [None]
  - THERAPY NON-RESPONDER [None]
